FAERS Safety Report 4602782-2 (Version None)
Quarter: 2005Q1

REPORT INFORMATION
  Report Type: 
  Country: None (occurrence: None)
  Receive Date: 20050309
  Receipt Date: 20050303
  Transmission Date: 20050727
  Serious: Yes (Hospitalization)
  Sender: FDA-Public Use
  Company Number: PHBS2005SE03205

PATIENT
  Age: 76 Year
  Sex: Male

DRUGS (13)
  1. CABASER [Suspect]
     Indication: PARKINSON'S DISEASE
     Dosage: 3 MG, QD
     Route: 048
     Dates: start: 20011023, end: 20041101
  2. MOVICOL [Concomitant]
     Route: 048
  3. IMPUGAN [Concomitant]
     Dosage: 40 MG, UNK
  4. ASPIRIN [Concomitant]
     Dosage: 160 MG, UNK
  5. SPIRONOLACTONE [Concomitant]
     Dosage: 50 MG, UNK
  6. MADOPAR DEPOT [Concomitant]
     Route: 048
  7. MADOPAR QUICK [Concomitant]
     Route: 048
  8. SOTALOL HCL [Concomitant]
     Dosage: 40 MG, UNK
     Route: 048
  9. CALCICHEW-D3 [Concomitant]
     Route: 048
  10. COMTESS [Concomitant]
     Dosage: 200 MG, UNK
  11. TRIOBE [Concomitant]
     Route: 048
  12. ZOPIKLON NM PHARMA [Concomitant]
     Dosage: 7.5 MG, UNK
     Route: 048
  13. PRAVIDEL [Suspect]
     Indication: PARKINSON'S DISEASE
     Dosage: 10 MG, QD
     Route: 048
     Dates: start: 19980101, end: 20011023

REACTIONS (5)
  - ASCITES [None]
  - CARDIOMYOPATHY [None]
  - FALL [None]
  - OEDEMA PERIPHERAL [None]
  - TRICUSPID VALVE INCOMPETENCE [None]
